FAERS Safety Report 12978111 (Version 1)
Quarter: 2016Q4

REPORT INFORMATION
  Report Type: Spontaneous
  Country: US (occurrence: US)
  Receive Date: 20161128
  Receipt Date: 20161128
  Transmission Date: 20170207
  Serious: No
  Sender: FDA-Public Use
  Company Number: US-PFIZER INC-2016375040

PATIENT
  Age: 50 Year
  Sex: Female

DRUGS (1)
  1. MENEST [Suspect]
     Active Substance: ESTROGENS, ESTERIFIED
     Indication: HORMONE THERAPY
     Dosage: 0.3 MG, 1X/DAY
     Dates: start: 2003, end: 20160725

REACTIONS (3)
  - Pre-existing condition improved [Unknown]
  - Drug dose omission [Not Recovered/Not Resolved]
  - Therapeutic response unexpected [Unknown]

NARRATIVE: CASE EVENT DATE: 2003
